FAERS Safety Report 9061748 (Version 1)
Quarter: 2013Q1

REPORT INFORMATION
  Report Type: Spontaneous
  Country: IT (occurrence: IT)
  Receive Date: 20130204
  Receipt Date: 20130204
  Transmission Date: 20140127
  Serious: Yes (Hospitalization, Other)
  Sender: FDA-Public Use
  Company Number: PHHY2012IT112512

PATIENT
  Sex: Male

DRUGS (6)
  1. TEGRETOL [Suspect]
     Indication: EPILEPSY
     Dosage: 2 DF,DAILY
     Route: 048
     Dates: start: 20120701, end: 20121016
  2. ASA [Concomitant]
     Indication: THROMBOSIS PROPHYLAXIS
     Dosage: 100 MG, UNK
     Route: 048
  3. ENALAPRIL [Concomitant]
     Indication: HYPERTENSION
  4. MONOKET [Concomitant]
     Dosage: 1 DF, UNK
  5. OMNIC [Concomitant]
     Indication: BENIGN PROSTATIC HYPERPLASIA
     Dosage: 1 DF, UNK
  6. KEPPRA [Concomitant]
     Indication: EPILEPSY
     Dosage: 1 DF, UNK

REACTIONS (3)
  - Hyponatraemia [Recovered/Resolved]
  - Vascular wall hypertrophy [Unknown]
  - Platelet count decreased [Unknown]
